FAERS Safety Report 5044765-7 (Version None)
Quarter: 2006Q3

REPORT INFORMATION
  Report Type: 
  Country: None (occurrence: None)
  Receive Date: 20060707
  Receipt Date: 20060630
  Transmission Date: 20061208
  Serious: Yes (Death, Other)
  Sender: FDA-Public Use
  Company Number: FR-RB-3518-2006

PATIENT
  Weight: 2.51 kg

DRUGS (1)
  1. BUPRENORPHINE HCL [Suspect]
     Indication: DRUG USE FOR UNKNOWN INDICATION
     Dosage: DURING ALL PREGNANCY
     Route: 064
     Dates: start: 20050101, end: 20060426

REACTIONS (6)
  - DRUG EXPOSURE DURING PREGNANCY [None]
  - HEART DISEASE CONGENITAL [None]
  - HYPOTONIA [None]
  - IRRITABILITY [None]
  - POOR SUCKING REFLEX [None]
  - PREMATURE BABY [None]
